FAERS Safety Report 20727541 (Version 1)
Quarter: 2022Q2

REPORT INFORMATION
  Report Type: Spontaneous
  Country: US (occurrence: None)
  Receive Date: 20220419
  Receipt Date: 20220419
  Transmission Date: 20220721
  Serious: No
  Sender: FDA-Public Use
  Company Number: US-ROCHE-2923221

PATIENT
  Age: 42 Year
  Sex: Female

DRUGS (3)
  1. AVASTIN [Suspect]
     Active Substance: BEVACIZUMAB
     Indication: Type 2 diabetes mellitus
     Dosage: STRENGTH-100MG/4ML
     Route: 047
     Dates: start: 20210927
  2. AVASTIN [Suspect]
     Active Substance: BEVACIZUMAB
     Indication: Diabetic retinopathy
  3. AVASTIN [Suspect]
     Active Substance: BEVACIZUMAB
     Indication: Macular oedema

REACTIONS (2)
  - Off label use [Unknown]
  - No adverse event [Unknown]

NARRATIVE: CASE EVENT DATE: 20210927
